FAERS Safety Report 10255443 (Version 3)
Quarter: 2015Q3

REPORT INFORMATION
  Report Type: Spontaneous
  Country: US (occurrence: US)
  Receive Date: 20140624
  Receipt Date: 20150828
  Transmission Date: 20151125
  Serious: No
  Sender: FDA-Public Use
  Company Number: US-PFIZER INC-2014171980

PATIENT
  Age: 67 Year
  Sex: Male
  Weight: 74.38 kg

DRUGS (3)
  1. COUMADIN [Concomitant]
     Active Substance: WARFARIN SODIUM
     Indication: COAGULOPATHY
     Dosage: UNK
  2. VIAGRA [Interacting]
     Active Substance: SILDENAFIL CITRATE
     Dosage: HALF OF 100 MG TABLET
  3. VIAGRA [Suspect]
     Active Substance: SILDENAFIL CITRATE
     Indication: ERECTILE DYSFUNCTION
     Dosage: 100 MG, AS NEEDED (BEFORE SEXUAL INTERCOURSE)
     Dates: start: 1999

REACTIONS (2)
  - Drug effect incomplete [Unknown]
  - Alcohol interaction [Unknown]
